FAERS Safety Report 12628966 (Version 1)
Quarter: 2016Q3

REPORT INFORMATION
  Report Type: Spontaneous
  Country: US (occurrence: None)
  Receive Date: 20160805
  Receipt Date: 20160805
  Transmission Date: 20161109
  Serious: Yes (Hospitalization)
  Sender: FDA-Public Use
  Company Number: None

PATIENT
  Age: 70 Year
  Sex: Male
  Weight: 135 kg

DRUGS (2)
  1. INSULIN [Suspect]
     Active Substance: INSULIN NOS
     Indication: DIABETES MELLITUS
     Dosage: 90 UNITS AT BEDTIME SQ
     Route: 058
     Dates: start: 20110127
  2. INSULIN [Suspect]
     Active Substance: INSULIN NOS
     Indication: DIABETES MELLITUS
     Dosage: 20 UNITS BID SQ
     Route: 058
     Dates: start: 20100831, end: 20160613

REACTIONS (8)
  - Hyperhidrosis [None]
  - Fatigue [None]
  - Asthenia [None]
  - Syncope [None]
  - Hypotension [None]
  - Hypoglycaemia [None]
  - Pallor [None]
  - Dyspnoea [None]

NARRATIVE: CASE EVENT DATE: 20160610
